FAERS Safety Report 15256354 (Version 2)
Quarter: 2018Q3

REPORT INFORMATION
  Report Type: Spontaneous
  Country: US (occurrence: US)
  Receive Date: 20180808
  Receipt Date: 20180906
  Transmission Date: 20181010
  Serious: No
  Sender: FDA-Public Use
  Company Number: US-B.I. PHARMACEUTICALS,INC./RIDGEFIELD-2018-BI-039227

PATIENT
  Age: 73 Year
  Sex: Male

DRUGS (1)
  1. ATROVENT [Suspect]
     Active Substance: IPRATROPIUM BROMIDE
     Indication: CHRONIC OBSTRUCTIVE PULMONARY DISEASE
     Dosage: 2 PUFFS 4 TIMES DAILY; FORMULATION: INHALATION AEROSOL ACTION(S TAKEN WITH PRODUCT: DOSE NOT CHANGED
     Route: 055
     Dates: start: 2017

REACTIONS (2)
  - Product quality issue [Unknown]
  - Dyspnoea [Not Recovered/Not Resolved]

NARRATIVE: CASE EVENT DATE: 20180725
